FAERS Safety Report 7985308-5 (Version None)
Quarter: 2011Q4

REPORT INFORMATION
  Report Type: 
  Country: None (occurrence: None)
  Receive Date: 20111216
  Receipt Date: 20111213
  Transmission Date: 20120403
  Serious: Yes (Death, Life-Threatening, Hospitalization)
  Sender: FDA-Public Use
  Company Number: DE-SANOFI-AVENTIS-2011SA073118

PATIENT
  Age: 62 Year
  Sex: Female

DRUGS (19)
  1. METOCLOPRAMIDE HYDROCHLORIDE [Concomitant]
     Route: 065
  2. DOCETAXEL [Suspect]
     Route: 041
     Dates: start: 20111019, end: 20111019
  3. OXALIPLATIN [Suspect]
     Route: 041
     Dates: start: 20111019, end: 20111019
  4. LENOGRASTIM [Concomitant]
     Route: 065
  5. FLUOROURACIL [Suspect]
     Route: 041
     Dates: start: 20111019, end: 20111019
  6. LINOLA [Concomitant]
     Route: 065
  7. CLARITHROMYCIN [Concomitant]
     Route: 065
  8. ANTIBIOTICS [Concomitant]
     Route: 065
  9. NEOSTIGMINE [Concomitant]
     Route: 065
  10. ERYTHROMYCIN [Concomitant]
     Route: 065
  11. PIPERACILLIN [Concomitant]
     Route: 065
  12. PANTOPRAZOLE SODIUM [Concomitant]
     Route: 065
  13. CIPROFLOXACIN [Concomitant]
     Route: 065
  14. CASPOFUNGIN ACETATE [Concomitant]
     Route: 065
  15. MEROPENEM [Concomitant]
     Route: 065
  16. NOREPINEPHRINE BITARTRATE [Concomitant]
     Route: 065
  17. LEUCOVORIN CALCIUM [Suspect]
     Route: 042
     Dates: start: 20111019, end: 20111019
  18. TANTUM VERDE [Concomitant]
     Route: 065
  19. HEPARIN [Concomitant]
     Route: 065

REACTIONS (15)
  - NAUSEA [None]
  - VOMITING [None]
  - BRAIN ABSCESS [None]
  - MUCOSAL INFLAMMATION [None]
  - NEUTROPENIA [None]
  - ABDOMINAL PAIN [None]
  - FATIGUE [None]
  - PANCYTOPENIA [None]
  - BRADYCARDIA [None]
  - PNEUMONIA [None]
  - SEPSIS [None]
  - CLOSTRIDIUM COLITIS [None]
  - RENAL FAILURE [None]
  - OESOPHAGITIS [None]
  - DEHYDRATION [None]
